FAERS Safety Report 6725458-4 (Version None)
Quarter: 2010Q2

REPORT INFORMATION
  Report Type: 
  Country: None (occurrence: None)
  Receive Date: 20100513
  Receipt Date: 20100513
  Transmission Date: 20101027
  Serious: Yes (Hospitalization, Disabling)
  Sender: FDA-Public Use
  Company Number: None

PATIENT
  Sex: Female
  Weight: 105.2345 kg

DRUGS (1)
  1. INVEGA [Suspect]
     Indication: BIPOLAR DISORDER
     Dosage: 6 MG 1 DAILY
     Dates: start: 20100301, end: 20100423

REACTIONS (11)
  - AGGRESSION [None]
  - COUGH [None]
  - DYSSTASIA [None]
  - DYSURIA [None]
  - FALL [None]
  - FEELING COLD [None]
  - FEELING HOT [None]
  - GASTROINTESTINAL MOTILITY DISORDER [None]
  - MALAISE [None]
  - SPEECH DISORDER [None]
  - VOMITING [None]
